FAERS Safety Report 6632261-2 (Version None)
Quarter: 2010Q1

REPORT INFORMATION
  Report Type: 
  Country: None (occurrence: None)
  Receive Date: 20100312
  Receipt Date: 20100302
  Transmission Date: 20100710
  Serious: Yes (Other)
  Sender: FDA-Public Use
  Company Number: US-ABBOTT-10P-163-0626043-00

PATIENT
  Sex: Male

DRUGS (10)
  1. TRILIPIX [Suspect]
     Indication: DYSLIPIDAEMIA
     Route: 048
     Dates: start: 20091101, end: 20100208
  2. TRILIPIX [Suspect]
     Indication: HYPERTRIGLYCERIDAEMIA
  3. SIMVASTATIN [Concomitant]
     Indication: DRUG USE FOR UNKNOWN INDICATION
     Route: 048
  4. FISH OIL [Concomitant]
     Indication: MEDICAL DIET
     Route: 048
  5. MULTIPLE VITAMIN [Concomitant]
     Indication: MEDICAL DIET
     Route: 048
  6. PAXIL [Concomitant]
     Indication: DRUG USE FOR UNKNOWN INDICATION
     Route: 048
  7. RISPERDAL M [Concomitant]
     Indication: DRUG USE FOR UNKNOWN INDICATION
     Route: 048
  8. COLESTID [Concomitant]
     Indication: DRUG USE FOR UNKNOWN INDICATION
     Route: 048
  9. MILK THISTLE [Concomitant]
     Indication: MEDICAL DIET
     Route: 048
  10. MULTI-VITAMIN [Concomitant]
     Indication: MEDICAL DIET
     Route: 048

REACTIONS (2)
  - HEPATIC FAILURE [None]
  - MYALGIA [None]
